FAERS Safety Report 6221031-5 (Version None)
Quarter: 2009Q2

REPORT INFORMATION
  Report Type: 
  Country: None (occurrence: None)
  Receive Date: 20090610
  Receipt Date: 20090602
  Transmission Date: 20091009
  Serious: Yes (Hospitalization)
  Sender: FDA-Public Use
  Company Number: A0789587A

PATIENT
  Sex: Male
  Weight: 97 kg

DRUGS (4)
  1. SERETIDE [Suspect]
     Dosage: 1PUFF TWICE PER DAY
     Route: 055
     Dates: start: 20060101
  2. METFORMIN [Concomitant]
  3. ZYLORIC [Concomitant]
  4. CORENITEC (ENALAPRIL+HYDROCHLOROTHIAZIDE) [Concomitant]

REACTIONS (2)
  - PRODUCT QUALITY ISSUE [None]
  - SKIN INFECTION [None]
